FAERS Safety Report 17472780 (Version 1)
Quarter: 2020Q1

REPORT INFORMATION
  Report Type: Spontaneous
  Country: US (occurrence: US)
  Receive Date: 20200217
  Receipt Date: 20200217
  Transmission Date: 20200409
  Serious: Yes (Hospitalization)
  Sender: FDA-Public Use
  Company Number: None

PATIENT
  Age: 69 Year
  Sex: Male
  Weight: 124 kg

DRUGS (2)
  1. AMLODIPINE (AMLODIPINE BESYLATE 5MG TAB) [Suspect]
     Active Substance: AMLODIPINE BESYLATE
     Dosage: ?          OTHER DOSE:1 TAB;?
     Route: 048
     Dates: start: 20180823, end: 20200205
  2. LISINOPRIL (LISINOPRIL 10MG TAB) [Suspect]
     Active Substance: LISINOPRIL
     Route: 048
     Dates: start: 20190923, end: 20200205

REACTIONS (9)
  - Hypotension [None]
  - Septic shock [None]
  - Anuria [None]
  - Influenza [None]
  - Acute respiratory failure [None]
  - Pneumonia [None]
  - Haematemesis [None]
  - Shock [None]
  - Acidosis [None]

NARRATIVE: CASE EVENT DATE: 20200205
